FAERS Safety Report 20289927 (Version 1)
Quarter: 2022Q1

REPORT INFORMATION
  Report Type: Report from Study
  Country: US (occurrence: None)
  Receive Date: 20220104
  Receipt Date: 20220104
  Transmission Date: 20220423
  Serious: Yes (Death)
  Sender: FDA-Public Use
  Company Number: 2021A909639

PATIENT
  Age: 19663 Day
  Sex: Male
  Weight: 115.7 kg

DRUGS (1)
  1. CALQUENCE [Suspect]
     Active Substance: ACALABRUTINIB
     Indication: Chronic lymphocytic leukaemia
     Route: 048
     Dates: start: 20210717, end: 20211230

REACTIONS (1)
  - Death [Fatal]

NARRATIVE: CASE EVENT DATE: 20211230
